FAERS Safety Report 18476371 (Version 5)
Quarter: 2020Q4

REPORT INFORMATION
  Report Type: Spontaneous
  Country: US (occurrence: US)
  Receive Date: 20201106
  Receipt Date: 20201218
  Transmission Date: 20210114
  Serious: No
  Sender: FDA-Public Use
  Company Number: US-PFIZER INC-2020431690

PATIENT
  Age: 68 Year
  Sex: Female

DRUGS (1)
  1. LYRICA [Suspect]
     Active Substance: PREGABALIN
     Dosage: UNK, AS NEEDED (1-2 QD (ONCE A DAY)
     Route: 048

REACTIONS (5)
  - Coronavirus infection [Unknown]
  - Peripheral swelling [Unknown]
  - Emotional disorder [Unknown]
  - Chronic obstructive pulmonary disease [Unknown]
  - Frustration tolerance decreased [Unknown]
